FAERS Safety Report 24348872 (Version 1)
Quarter: 2024Q3

REPORT INFORMATION
  Report Type: Spontaneous
  Country: US (occurrence: US)
  Receive Date: 20240923
  Receipt Date: 20240923
  Transmission Date: 20241017
  Serious: No
  Sender: ASTELLAS
  Company Number: US-ASTELLAS-2024-AER-007244

PATIENT
  Age: 72 Year
  Sex: Female

DRUGS (1)
  1. LEXISCAN [Suspect]
     Active Substance: REGADENOSON
     Indication: Product used for unknown indication
     Route: 065

REACTIONS (1)
  - Malaise [Unknown]
